FAERS Safety Report 5382275-8 (Version None)
Quarter: 2007Q3

REPORT INFORMATION
  Report Type: 
  Country: None (occurrence: None)
  Receive Date: 20070709
  Receipt Date: 20070628
  Transmission Date: 20080115
  Serious: Yes (Hospitalization)
  Sender: FDA-Public Use
  Company Number: IT-PFIZER INC-2007042480

PATIENT
  Sex: Female
  Weight: 88.5 kg

DRUGS (2)
  1. SU-011,248 [Suspect]
     Indication: RENAL CELL CARCINOMA STAGE UNSPECIFIED
     Route: 048
     Dates: start: 20070402, end: 20070429
  2. NORVASC [Concomitant]
     Dates: start: 20070416, end: 20070502

REACTIONS (1)
  - PARAESTHESIA [None]
